FAERS Safety Report 20689743 (Version 1)
Quarter: 2022Q2

REPORT INFORMATION
  Report Type: Spontaneous
  Country: US (occurrence: None)
  Receive Date: 20220407
  Receipt Date: 20220407
  Transmission Date: 20220721
  Serious: Yes (Life-Threatening, Hospitalization, Disabling)
  Sender: FDA-Public Use
  Company Number: None

PATIENT
  Age: 11 Year
  Sex: Male
  Weight: 32.4 kg

DRUGS (1)
  1. MIRALAX [Suspect]
     Active Substance: POLYETHYLENE GLYCOL 3350
     Indication: Product used for unknown indication

REACTIONS (8)
  - Brain cancer metastatic [None]
  - Attention deficit hyperactivity disorder [None]
  - Anxiety [None]
  - Hallucination, auditory [None]
  - Hallucination, visual [None]
  - Depression [None]
  - Developmental delay [None]
  - Adverse drug reaction [None]

NARRATIVE: CASE EVENT DATE: 20200925
